FAERS Safety Report 16011675 (Version 2)
Quarter: 2019Q1

REPORT INFORMATION
  Report Type: Spontaneous
  Country: US (occurrence: US)
  Receive Date: 20190227
  Receipt Date: 20190308
  Transmission Date: 20190418
  Serious: No
  Sender: FDA-Public Use
  Company Number: US-PFIZER INC-2019084319

PATIENT
  Age: 23 Year
  Sex: Female
  Weight: 79.37 kg

DRUGS (1)
  1. LYRICA CR [Suspect]
     Active Substance: PREGABALIN
     Indication: POLYNEUROPATHY
     Dosage: 330 MG, DAILY (TWO CAPSULES PO EVERY DAY)
     Route: 048

REACTIONS (1)
  - Migraine [Unknown]
